FAERS Safety Report 17185157 (Version 2)
Quarter: 2020Q1

REPORT INFORMATION
  Report Type: Spontaneous
  Country: US (occurrence: US)
  Receive Date: 20191220
  Receipt Date: 20200103
  Transmission Date: 20200409
  Serious: Yes (Hospitalization)
  Sender: FDA-Public Use
  Company Number: US-VERTEX PHARMACEUTICALS-2019-013131

PATIENT
  Age: 16 Year
  Sex: Male

DRUGS (18)
  1. CALCIUM [Concomitant]
     Active Substance: CALCIUM
     Dosage: UNK, TID
  2. CAYSTON [Concomitant]
     Active Substance: AZTREONAM
     Dosage: TID
     Route: 055
     Dates: start: 20180121
  3. POLYETHYLENE GLYCOL [Concomitant]
     Active Substance: POLYETHYLENE GLYCOLS
     Dosage: 34 GRAM DAILY
     Route: 048
     Dates: start: 20150826
  4. CYPROHEPTADINE HCL [Concomitant]
     Active Substance: CYPROHEPTADINE HYDROCHLORIDE
     Dosage: BED TIME, QD
     Route: 048
     Dates: start: 20180305
  5. FERROUS SULFATE. [Concomitant]
     Active Substance: FERROUS SULFATE
     Dosage: UNK
     Route: 048
     Dates: start: 20170320
  6. LORATADINE. [Concomitant]
     Active Substance: LORATADINE
     Dosage: 1 DOSAGE FORM, QD
     Route: 048
  7. SYMDEKO [Suspect]
     Active Substance: IVACAFTOR\TEZACAFTOR
     Indication: CYSTIC FIBROSIS
     Dosage: 1 YELLOW TAB, AM; 1 BLUE TAB PM
     Route: 048
     Dates: start: 20180316, end: 20191212
  8. RANITIDINE HCL [Concomitant]
     Active Substance: RANITIDINE HYDROCHLORIDE
     Dosage: 10 MILLILITER, BID
     Route: 048
     Dates: start: 19900101
  9. VITAMIN D3 [Concomitant]
     Active Substance: CHOLECALCIFEROL
     Dosage: WEEKLY 8 WEEKS
     Route: 048
  10. SODIUM CHLORIDE. [Concomitant]
     Active Substance: SODIUM CHLORIDE
     Dosage: AS DIRECTED
     Dates: start: 20181022
  11. ALBUTEROL SULFATE. [Concomitant]
     Active Substance: ALBUTEROL SULFATE
     Indication: COUGH
  12. CREON [Concomitant]
     Active Substance: PANCRELIPASE AMYLASE\PANCRELIPASE LIPASE\PANCRELIPASE PROTEASE
     Dosage: 3 CAPSULE WITH MEAL AND 2 WITH SNACKS
     Dates: start: 19900101
  13. PULMOZYME [Concomitant]
     Active Substance: DORNASE ALFA
     Dosage: 2.5 MILLIGRAM PER MILLILITRE, QD
     Dates: start: 19900101
  14. LANTUS [Concomitant]
     Active Substance: INSULIN GLARGINE
     Dosage: 15 UNITS PER DAY
     Route: 058
     Dates: start: 20150415
  15. ADVAIR HFA [Concomitant]
     Active Substance: FLUTICASONE PROPIONATE\SALMETEROL XINAFOATE
     Dosage: 2 PUFFS
     Dates: start: 20151117
  16. ALBUTEROL SULFATE. [Concomitant]
     Active Substance: ALBUTEROL SULFATE
     Indication: WHEEZING
     Dosage: UNK UNK, BID
  17. ENSURE COMPACT [Concomitant]
     Dosage: UNK, TID
     Route: 048
     Dates: start: 20180514
  18. KEPPRA [Concomitant]
     Active Substance: LEVETIRACETAM
     Dosage: 5 MILLILITER, BID
     Route: 048

REACTIONS (1)
  - Infective pulmonary exacerbation of cystic fibrosis [Recovered/Resolved]

NARRATIVE: CASE EVENT DATE: 20191209
